FAERS Safety Report 16720117 (Version 6)
Quarter: 2019Q4

REPORT INFORMATION
  Report Type: Spontaneous
  Country: US (occurrence: US)
  Receive Date: 20190820
  Receipt Date: 20191205
  Transmission Date: 20200122
  Serious: Yes (Other)
  Sender: FDA-Public Use
  Company Number: US-PFIZER INC-2019357454

PATIENT
  Age: 72 Year
  Sex: Female
  Weight: 53.61 kg

DRUGS (2)
  1. IBRANCE [Suspect]
     Active Substance: PALBOCICLIB
     Indication: BREAST CANCER METASTATIC
     Dosage: 125 MG, CYCLIC, (D1-21 Q 28 DAYS)
     Route: 048
     Dates: start: 20190716
  2. IBRANCE [Suspect]
     Active Substance: PALBOCICLIB
     Dosage: 75 MG, CYCLIC (DL-21 Q (EVERY) 28 DAYS)
     Route: 048
     Dates: start: 20190716

REACTIONS (12)
  - Weight decreased [Unknown]
  - Neoplasm progression [Unknown]
  - Decreased appetite [Unknown]
  - Thrombocytopenia [Unknown]
  - Pleural effusion [Unknown]
  - Abdominal discomfort [Unknown]
  - Nausea [Unknown]
  - Dyspnoea [Unknown]
  - Vomiting [Unknown]
  - Full blood count decreased [Unknown]
  - Diarrhoea [Unknown]
  - Pyrexia [Unknown]

NARRATIVE: CASE EVENT DATE: 2019
